FAERS Safety Report 15983694 (Version 1)
Quarter: 2019Q1

REPORT INFORMATION
  Report Type: Spontaneous
  Country: DK (occurrence: DK)
  Receive Date: 20190220
  Receipt Date: 20190220
  Transmission Date: 20190418
  Serious: Yes (Other)
  Sender: FDA-Public Use
  Company Number: DK-TEVA-2019-DK-1013004

PATIENT
  Age: 67 Year
  Sex: Female
  Weight: 68 kg

DRUGS (1)
  1. VENLAFAXINE [Suspect]
     Active Substance: VENLAFAXINE HYDROCHLORIDE
     Indication: DEPRESSION
     Dosage: DOSIS: 1MAR2013-8DEC2016 UKENDT, 8DEC2016-8FEB2018 75 MG X 1 DGL, 8FEB2018-26NOV2018 150 MG X 1 DGL
     Route: 048
     Dates: start: 20130301, end: 20181126

REACTIONS (4)
  - Pruritus [Recovered/Resolved]
  - Neurodermatitis [Unknown]
  - Atypical fibroxanthoma [Recovered/Resolved]
  - Skin neoplasm excision [Recovered/Resolved]

NARRATIVE: CASE EVENT DATE: 2017
